FAERS Safety Report 5662752-2 (Version None)
Quarter: 2008Q1

REPORT INFORMATION
  Report Type: 
  Country: None (occurrence: None)
  Receive Date: 20080311
  Receipt Date: 20080311
  Transmission Date: 20080703
  Serious: Yes (Other)
  Sender: FDA-Public Use
  Company Number: None

PATIENT
  Age: 36 Year
  Sex: Male
  Weight: 77.1115 kg

DRUGS (1)
  1. ZICAM MATRIXX [Suspect]
     Indication: NASOPHARYNGITIS
     Dates: start: 20080229, end: 20080229

REACTIONS (3)
  - AGEUSIA [None]
  - ANOSMIA [None]
  - NASAL DISCOMFORT [None]
